FAERS Safety Report 4908046-1 (Version None)
Quarter: 2006Q1

REPORT INFORMATION
  Report Type: 
  Country: None (occurrence: None)
  Receive Date: 20060210
  Receipt Date: 20051128
  Transmission Date: 20060701
  Serious: Yes (Hospitalization)
  Sender: FDA-Public Use
  Company Number: PHBS2005JP17785

PATIENT
  Age: 34 Year
  Sex: Female

DRUGS (6)
  1. VOLTAREN [Suspect]
     Indication: PYREXIA
     Dosage: 25 MG, PRN
     Route: 048
     Dates: start: 20040614, end: 20040628
  2. PL GRAN. [Concomitant]
     Indication: PYREXIA
     Dosage: 3 G/DAY
     Route: 048
     Dates: start: 20040614, end: 20040628
  3. MERCAZOLE [Suspect]
     Indication: BASEDOW'S DISEASE
     Dosage: 10 MG, TID
     Route: 048
     Dates: start: 20040531, end: 20040613
  4. MERCAZOLE [Suspect]
     Dosage: 5 MG, TID
     Route: 048
     Dates: start: 20040614, end: 20040628
  5. LOXONIN [Concomitant]
     Indication: PYREXIA
     Dosage: 60 MG/DAY
     Route: 048
     Dates: start: 20040607, end: 20040614
  6. MUCOSTA [Concomitant]
     Dosage: 300 MG/DAY
     Route: 048
     Dates: start: 20040614, end: 20040628

REACTIONS (5)
  - AGRANULOCYTOSIS [None]
  - HERPES SIMPLEX [None]
  - NEUTROPHIL COUNT DECREASED [None]
  - PYREXIA [None]
  - WHITE BLOOD CELL COUNT DECREASED [None]
